FAERS Safety Report 25430122 (Version 1)
Quarter: 2025Q2

REPORT INFORMATION
  Report Type: Spontaneous
  Country: US (occurrence: US)
  Receive Date: 20250612
  Receipt Date: 20250612
  Transmission Date: 20250717
  Serious: No
  Sender: PFIZER
  Company Number: US-PFIZER INC-202500096988

PATIENT
  Age: 69 Year
  Sex: Male

DRUGS (2)
  1. BRAFTOVI [Suspect]
     Active Substance: ENCORAFENIB
     Indication: Metastases to lymph nodes
     Dosage: 450 MG, DAILY (TAKE 6 CAPSULES)
     Route: 048
  2. MEKTOVI [Suspect]
     Active Substance: BINIMETINIB
     Indication: Metastases to lymph nodes
     Dosage: 45 MG, 2X/DAY (TAKE 3 TABLETS)
     Route: 048

REACTIONS (2)
  - Off label use [Unknown]
  - Hypertension [Not Recovered/Not Resolved]
